FAERS Safety Report 17560922 (Version 1)
Quarter: 2020Q1

REPORT INFORMATION
  Report Type: Spontaneous
  Country: US (occurrence: US)
  Receive Date: 20200319
  Receipt Date: 20200319
  Transmission Date: 20200409
  Serious: Yes (Other)
  Sender: FDA-Public Use
  Company Number: US-PFIZER INC-2020117042

PATIENT
  Age: 77 Year
  Sex: Male

DRUGS (2)
  1. ALTACE [Suspect]
     Active Substance: RAMIPRIL
     Dosage: 10 MG, 1X/DAY
     Route: 048
  2. ALTACE [Suspect]
     Active Substance: RAMIPRIL
     Dosage: 20 MG, 1X/DAY

REACTIONS (1)
  - Neoplasm malignant [Unknown]
